FAERS Safety Report 8907448 (Version 1)
Quarter: 2012Q4

REPORT INFORMATION
  Report Type: 
  Country: US (occurrence: US)
  Receive Date: 20121113
  Receipt Date: 20121113
  Transmission Date: 20130627
  Serious: No
  Sender: FDA-Public Use
  Company Number: US-AMGEN-USASP2012010448

PATIENT
  Sex: Male

DRUGS (7)
  1. ENBREL [Suspect]
     Indication: PRODUCT USED FOR UNKNOWN INDICATION
     Dosage: 50 mg, qwk
  2. LISINOPRIL [Concomitant]
     Dosage: 5 mg, UNK
  3. ORACEA [Concomitant]
     Dosage: 40 mg, UNK
  4. VITAMIN C                          /00008001/ [Concomitant]
     Dosage: 500 mg, UNK
  5. B COMPLEX                          /00212701/ [Concomitant]
     Dosage: UNK
  6. MULTIVITAMIN                       /00097801/ [Concomitant]
  7. B12-VITAMIIN [Concomitant]
     Dosage: 1 mg, UNK

REACTIONS (3)
  - Limb injury [Unknown]
  - Excoriation [Unknown]
  - Nasopharyngitis [Unknown]
